FAERS Safety Report 7038706-0 (Version None)
Quarter: 2010Q4

REPORT INFORMATION
  Report Type: 
  Country: None (occurrence: None)
  Receive Date: 20101012
  Receipt Date: 20101004
  Transmission Date: 20110411
  Serious: Yes (Other)
  Sender: FDA-Public Use
  Company Number: US-RANBAXY-2010US-38562

PATIENT

DRUGS (1)
  1. ACETAMINOPHEN [Suspect]
     Indication: ARTHRALGIA
     Dosage: 650 MG, BID
     Route: 048
     Dates: start: 20100701

REACTIONS (1)
  - HAEMORRHAGE URINARY TRACT [None]
